FAERS Safety Report 13086694 (Version 2)
Quarter: 2017Q1

REPORT INFORMATION
  Report Type: Spontaneous
  Country: US (occurrence: US)
  Receive Date: 20170104
  Receipt Date: 20170207
  Transmission Date: 20170428
  Serious: Yes (Life-Threatening, Hospitalization)
  Sender: FDA-Public Use
  Company Number: US-TAKEDA-2017MPI000008

PATIENT
  Sex: Male
  Weight: 94.97 kg

DRUGS (1)
  1. NINLARO [Suspect]
     Active Substance: IXAZOMIB
     Indication: PLASMA CELL MYELOMA
     Dosage: 3.0 MG, 1/WEEK
     Route: 048

REACTIONS (2)
  - Endotracheal intubation [Unknown]
  - Hospitalisation [Unknown]
